FAERS Safety Report 15493195 (Version 1)
Quarter: 2018Q4

REPORT INFORMATION
  Report Type: Spontaneous
  Country: US (occurrence: US)
  Receive Date: 20181004
  Receipt Date: 20181004
  Transmission Date: 20190205
  Serious: No
  Sender: FDA-Public Use
  Company Number: None

PATIENT
  Age: 57 Year
  Sex: Male

DRUGS (1)
  1. TEMOZOLOMIDE 250MG CAP [Suspect]
     Active Substance: TEMOZOLOMIDE
     Dates: start: 201803

REACTIONS (4)
  - Nausea [None]
  - Memory impairment [None]
  - Product distribution issue [None]
  - Product dose omission [None]

NARRATIVE: CASE EVENT DATE: 20181003
